FAERS Safety Report 8058076-9 (Version None)
Quarter: 2012Q1

REPORT INFORMATION
  Report Type: 
  Country: None (occurrence: None)
  Receive Date: 20120118
  Receipt Date: 20120118
  Transmission Date: 20120608
  Serious: Yes (Hospitalization)
  Sender: FDA-Public Use
  Company Number: None

PATIENT
  Sex: Male
  Weight: 77.1 kg

DRUGS (2)
  1. CARBOPLATIN [Suspect]
     Dosage: 1800 MG
     Dates: end: 20120102
  2. TAXOL [Suspect]
     Dosage: 528 MG
     Dates: end: 20120102

REACTIONS (1)
  - MENINGITIS ASEPTIC [None]
